APPROVED DRUG PRODUCT: DORZOLAMIDE HYDROCHLORIDE
Active Ingredient: DORZOLAMIDE HYDROCHLORIDE
Strength: EQ 2% BASE
Dosage Form/Route: SOLUTION/DROPS;OPHTHALMIC
Application: A078756 | Product #001
Applicant: TEVA PHARMACEUTICALS USA
Approved: Dec 4, 2008 | RLD: No | RS: No | Type: DISCN